FAERS Safety Report 8480745-7 (Version None)
Quarter: 2012Q3

REPORT INFORMATION
  Report Type: 
  Country: None (occurrence: None)
  Receive Date: 20120702
  Receipt Date: 20120620
  Transmission Date: 20120928
  Serious: Yes (Other)
  Sender: FDA-Public Use
  Company Number: ES-ELI_LILLY_AND_COMPANY-ES201204006491

PATIENT
  Age: 44 Year
  Sex: Female

DRUGS (3)
  1. PROZAC [Suspect]
     Dosage: 20 MG, QD
  2. ACFOL [Concomitant]
     Indication: PREGNANCY
     Dosage: 5 MG, QD
     Route: 048
     Dates: start: 20110701, end: 20120301
  3. PROZAC [Suspect]
     Indication: DEPRESSION
     Dosage: 20 MG, QD
     Route: 048
     Dates: start: 20110721

REACTIONS (2)
  - ABORTION SPONTANEOUS [None]
  - MATERNAL EXPOSURE DURING PREGNANCY [None]
